FAERS Safety Report 24774747 (Version 2)
Quarter: 2024Q4

REPORT INFORMATION
  Report Type: Report from Study
  Country: US (occurrence: US)
  Receive Date: 20241226
  Receipt Date: 20241231
  Transmission Date: 20250115
  Serious: Yes (Hospitalization)
  Sender: ABBVIE
  Company Number: US-ABBVIE-6060508

PATIENT
  Age: 28 Year
  Sex: Male
  Weight: 57.6 kg

DRUGS (2)
  1. SKYRIZI [Suspect]
     Active Substance: RISANKIZUMAB-RZAA
     Indication: Crohn^s disease
     Route: 058
     Dates: start: 2023
  2. SKYRIZI [Suspect]
     Active Substance: RISANKIZUMAB-RZAA
     Indication: Crohn^s disease
     Dosage: FORM STRENGTH: 600 MILLIGRAMS
     Route: 042
     Dates: start: 2023, end: 2024

REACTIONS (3)
  - Surgery [Unknown]
  - Crohn^s disease [Recovering/Resolving]
  - Stenosis [Recovered/Resolved]

NARRATIVE: CASE EVENT DATE: 20240909
